FAERS Safety Report 25996042 (Version 1)
Quarter: 2025Q4

REPORT INFORMATION
  Report Type: Spontaneous
  Country: US (occurrence: US)
  Receive Date: 20251104
  Receipt Date: 20251104
  Transmission Date: 20260118
  Serious: Yes (Hospitalization)
  Sender: ADAMAS PHARMA
  Company Number: US-ADM-ADM202510-004405

PATIENT
  Age: 76 Year
  Sex: Male

DRUGS (16)
  1. GOCOVRI [Suspect]
     Active Substance: AMANTADINE
     Indication: Dyskinesia
     Route: 048
     Dates: start: 20250305, end: 20251018
  2. GOCOVRI [Suspect]
     Active Substance: AMANTADINE
     Indication: Parkinson^s disease
  3. LASIX [Concomitant]
     Active Substance: FUROSEMIDE
     Dosage: NOT PROVIDED
  4. ASPIRIN [Concomitant]
     Active Substance: ASPIRIN
     Dosage: NOT PROVIDED
  5. CARBIDOPA\LEVODOPA [Concomitant]
     Active Substance: CARBIDOPA\LEVODOPA
     Dosage: EACH DF CONTAINS 25-100 MG
  6. FARXIGA [Concomitant]
     Active Substance: DAPAGLIFLOZIN PROPANEDIOL
     Dosage: NOT PROVIDED
  7. FINASTERIDE [Concomitant]
     Active Substance: FINASTERIDE
     Dosage: NOT PROVIDED
  8. METOPROLOL SUCCINATE [Concomitant]
     Active Substance: METOPROLOL SUCCINATE
     Dosage: NOT PROVIDED
  9. MIRAPEX [Concomitant]
     Active Substance: PRAMIPEXOLE DIHYDROCHLORIDE
     Dosage: NOT PROVIDED
  10. POTASSIUM CHLORIDE [Concomitant]
     Active Substance: POTASSIUM CHLORIDE
     Dosage: NOT PROVIDED
  11. XARELTO [Concomitant]
     Active Substance: RIVAROXABAN
     Dosage: NOT PROVIDED
  12. LEVOTHYROXINE [Concomitant]
     Active Substance: LEVOTHYROXINE
     Dosage: 50MCG
  13. CARVEDILOL [Concomitant]
     Active Substance: CARVEDILOL
     Dosage: NOT PROVIDED
  14. DIGOXIN [Concomitant]
     Active Substance: DIGOXIN
     Dosage: YELLOW
  15. LIPITOR [Concomitant]
     Active Substance: ATORVASTATIN CALCIUM
     Dosage: NOT PROVIDED
  16. PANTOPRAZOLE [Concomitant]
     Active Substance: PANTOPRAZOLE
     Dosage: NOT PROVIDED

REACTIONS (1)
  - Cardiac disorder [Not Recovered/Not Resolved]

NARRATIVE: CASE EVENT DATE: 20251018
